FAERS Safety Report 4531198-2 (Version None)
Quarter: 2004Q4

REPORT INFORMATION
  Report Type: 
  Country: None (occurrence: None)
  Receive Date: 20041216
  Receipt Date: 20041202
  Transmission Date: 20050328
  Serious: Yes (Other)
  Sender: FDA-Public Use
  Company Number: 200410074BYL

PATIENT

DRUGS (2)
  1. CIPROFLOXACIN [Suspect]
  2. CARBENIN [Concomitant]

REACTIONS (1)
  - GASTROENTERITIS STAPHYLOCOCCAL [None]
